FAERS Safety Report 5593306-4 (Version None)
Quarter: 2008Q1

REPORT INFORMATION
  Report Type: 
  Country: None (occurrence: None)
  Receive Date: 20080116
  Receipt Date: 20080109
  Transmission Date: 20080703
  Serious: Yes (Hospitalization, Other)
  Sender: FDA-Public Use
  Company Number: B0497687A

PATIENT
  Age: 87 Year
  Sex: Female
  Weight: 70 kg

DRUGS (8)
  1. ARIXTRA [Suspect]
     Indication: PHLEBITIS
     Route: 058
     Dates: start: 20071113, end: 20071118
  2. LOVENOX [Concomitant]
     Dosage: .4ML SEE DOSAGE TEXT
     Route: 058
     Dates: start: 20071118
  3. EFFEXOR [Concomitant]
     Route: 048
  4. NITRODERM [Concomitant]
     Route: 050
  5. FUROSEMIDE [Concomitant]
     Route: 048
  6. LEVOTHYROX [Concomitant]
     Route: 048
  7. KARDEGIC [Concomitant]
     Route: 048
  8. FORLAX [Concomitant]
     Route: 048

REACTIONS (4)
  - HAEMOGLOBIN DECREASED [None]
  - SKIN DISORDER [None]
  - SKIN NECROSIS [None]
  - SUBCUTANEOUS HAEMATOMA [None]
